FAERS Safety Report 9510147 (Version 2)
Quarter: 2013Q3

REPORT INFORMATION
  Report Type: Spontaneous
  Country: US (occurrence: US)
  Receive Date: 20130909
  Receipt Date: 20130909
  Transmission Date: 20140515
  Serious: No
  Sender: FDA-Public Use
  Company Number: US-BRISTOL-MYERS SQUIBB COMPANY-18741652

PATIENT
  Age: 59 Year
  Sex: Female
  Weight: 113.38 kg

DRUGS (3)
  1. ABILIFY [Suspect]
     Indication: AFFECTIVE DISORDER
     Route: 048
     Dates: start: 20120214
  2. ABILIFY [Suspect]
     Indication: DELUSION
     Route: 048
     Dates: start: 20120214
  3. EFFEXOR [Suspect]

REACTIONS (1)
  - Visual impairment [Unknown]
